FAERS Safety Report 17771448 (Version 4)
Quarter: 2023Q1

REPORT INFORMATION
  Report Type: Report from Study
  Country: ES (occurrence: ES)
  Receive Date: 20200512
  Receipt Date: 20230323
  Transmission Date: 20230418
  Serious: Yes (Hospitalization, Other)
  Sender: FDA-Public Use
  Company Number: ES-ROCHE-1251575

PATIENT
  Age: 68 Year
  Sex: Female
  Weight: 75 kg

DRUGS (20)
  1. TRASTUZUMAB [Suspect]
     Active Substance: TRASTUZUMAB
     Indication: HER2 positive breast cancer
     Dosage: 600MG, 3XW, LAST DOSE PRIOR TO SAE:10/SEP/2019
     Route: 058
     Dates: start: 20130701, end: 20130722
  2. TRASTUZUMAB [Suspect]
     Active Substance: TRASTUZUMAB
     Dosage: UNK
     Route: 058
     Dates: start: 20130729, end: 20131001
  3. TRASTUZUMAB [Suspect]
     Active Substance: TRASTUZUMAB
     Dosage: UNK
     Route: 065
     Dates: start: 20131022
  4. TRASTUZUMAB [Suspect]
     Active Substance: TRASTUZUMAB
     Dosage: UNK
     Route: 058
  5. METFORMIN [Suspect]
     Active Substance: METFORMIN HYDROCHLORIDE
     Indication: Diabetes mellitus
     Dosage: 850 MILLIGRAM
     Route: 048
     Dates: start: 201211, end: 201310
  6. DOCETAXEL [Suspect]
     Active Substance: DOCETAXEL
     Indication: Product used for unknown indication
     Dosage: UNK, QD
     Route: 065
     Dates: start: 20130701
  7. CARBOPLATIN [Suspect]
     Active Substance: CARBOPLATIN
     Indication: Product used for unknown indication
     Dosage: UNK,QD
     Route: 065
     Dates: start: 20130729, end: 20130729
  8. CARBOPLATIN [Suspect]
     Active Substance: CARBOPLATIN
     Dosage: UNK, QD
     Route: 065
     Dates: start: 20130819, end: 20130819
  9. CARBOPLATIN [Suspect]
     Active Substance: CARBOPLATIN
     Dosage: UNK, QD
     Route: 065
     Dates: start: 20130701, end: 20130729
  10. FOSFOMYCIN [Suspect]
     Active Substance: FOSFOMYCIN
     Indication: Product used for unknown indication
     Dosage: 1 GRAM, QD (1 G/ 24 HR)
     Route: 065
     Dates: start: 20130704, end: 20130705
  11. FERROUS SULFATE [Concomitant]
     Active Substance: FERROUS SULFATE
     Dosage: UNK
     Route: 065
     Dates: start: 20130729, end: 20130730
  12. NEUPOGEN [Concomitant]
     Active Substance: FILGRASTIM
     Dosage: 6000/MIU/L
     Route: 065
     Dates: start: 20130820, end: 20130824
  13. NEUPOGEN [Concomitant]
     Active Substance: FILGRASTIM
     Dosage: 6000/U/ML
     Route: 065
     Dates: start: 20130805, end: 20130807
  14. NEUPOGEN [Concomitant]
     Active Substance: FILGRASTIM
     Dosage: 150000/U/ML
     Route: 065
     Dates: start: 20130819, end: 20130820
  15. DOMPERIDONE [Concomitant]
     Active Substance: DOMPERIDONE
     Dosage: 20/MG/ML
     Route: 065
     Dates: start: 20130805
  16. PANTOPRAZOLE SODIUM [Concomitant]
     Active Substance: PANTOPRAZOLE SODIUM
     Dosage: UNK
     Route: 065
     Dates: start: 201211
  17. RANITIDINE [Concomitant]
     Active Substance: RANITIDINE
     Dosage: 300 MILLIGRAM
     Route: 042
     Dates: start: 201211
  18. NITROFURANTOIN [Concomitant]
     Active Substance: NITROFURANTOIN
     Dosage: UNK
     Route: 065
     Dates: start: 20130805, end: 20130812
  19. ACETAMINOPHEN [Concomitant]
     Active Substance: ACETAMINOPHEN
     Dosage: 500 MILLIGRAM
     Route: 065
     Dates: start: 201211
  20. SIMVASTATIN [Concomitant]
     Active Substance: SIMVASTATIN
     Dosage: 40 MILLIGRAM
     Route: 065
     Dates: start: 201211

REACTIONS (4)
  - Acute kidney injury [Recovered/Resolved]
  - Diarrhoea [Recovered/Resolved]
  - Blood creatinine decreased [Unknown]
  - Ejection fraction decreased [Unknown]

NARRATIVE: CASE EVENT DATE: 20130706
